FAERS Safety Report 5170171-0 (Version None)
Quarter: 2006Q4

REPORT INFORMATION
  Report Type: 
  Country: None (occurrence: None)
  Receive Date: 20061204
  Receipt Date: 20061124
  Transmission Date: 20070319
  Serious: Yes (Death, Life-Threatening, Hospitalization)
  Sender: FDA-Public Use
  Company Number: 2006145447

PATIENT
  Age: 61 Year
  Sex: Male

DRUGS (7)
  1. NORVASC [Suspect]
     Dosage: 5 MG, ORAL
     Route: 048
     Dates: end: 20061101
  2. ZANTAC [Concomitant]
  3. PRAVASTATIN [Concomitant]
  4. OLMETEC (OLMESARTAN) [Concomitant]
  5. ETIZOLAM (ETIZOLAM) [Concomitant]
  6. TOLEDOMIN (MILNACIPRAN HYDROCHLORIDE) [Concomitant]
  7. DOGMATYL (SULPIRIDE) [Concomitant]

REACTIONS (3)
  - BACTERIAL INFECTION [None]
  - CONDITION AGGRAVATED [None]
  - INTERSTITIAL LUNG DISEASE [None]
